FAERS Safety Report 12199107 (Version 1)
Quarter: 2016Q1

REPORT INFORMATION
  Report Type: Spontaneous
  Country: US (occurrence: US)
  Receive Date: 20160322
  Receipt Date: 20160322
  Transmission Date: 20160526
  Serious: Yes (Other)
  Sender: FDA-Public Use
  Company Number: US-ACORDA-ACO_122321_2016

PATIENT
  Sex: Female

DRUGS (2)
  1. AMPYRA [Suspect]
     Active Substance: DALFAMPRIDINE
     Indication: MULTIPLE SCLEROSIS
     Dosage: 10 MG, BID
     Route: 048
     Dates: start: 201505, end: 201601
  2. OTHER THERAPEUTIC PRODUCTS [Concomitant]
     Active Substance: UNSPECIFIED INGREDIENT
     Indication: PRODUCT USED FOR UNKNOWN INDICATION
     Route: 065

REACTIONS (8)
  - Coccydynia [Not Recovered/Not Resolved]
  - Type 2 diabetes mellitus [Unknown]
  - Haematoma [Not Recovered/Not Resolved]
  - Hepatic cirrhosis [Unknown]
  - Therapy cessation [Not Recovered/Not Resolved]
  - Eye contusion [Not Recovered/Not Resolved]
  - Fall [Unknown]
  - Asthenia [Unknown]
